FAERS Safety Report 6728445-5 (Version None)
Quarter: 2010Q2

REPORT INFORMATION
  Report Type: 
  Country: None (occurrence: None)
  Receive Date: 20100517
  Receipt Date: 20100507
  Transmission Date: 20101027
  Serious: Yes (Other)
  Sender: FDA-Public Use
  Company Number: US-ASTRAZENECA-2010SE10613

PATIENT
  Age: 56 Year
  Sex: Female
  Weight: 63.5 kg

DRUGS (5)
  1. NEXIUM [Suspect]
     Indication: GASTROOESOPHAGEAL REFLUX DISEASE
     Dosage: TWO TIMES DAILY
     Route: 048
  2. NEXIUM [Suspect]
     Route: 048
     Dates: start: 20090301
  3. OMEPRAZOLE [Suspect]
     Indication: OESOPHAGITIS
     Route: 048
  4. ZOCOR [Concomitant]
     Indication: BLOOD CHOLESTEROL
  5. TRAMADOL HCL [Concomitant]
     Indication: PAIN

REACTIONS (10)
  - DRUG INEFFECTIVE [None]
  - DYSPHAGIA [None]
  - GOITRE [None]
  - HEART VALVE INCOMPETENCE [None]
  - INTRACRANIAL ANEURYSM [None]
  - LARYNGITIS [None]
  - LUNG NEOPLASM [None]
  - OESOPHAGITIS [None]
  - THROAT IRRITATION [None]
  - THYROID NEOPLASM [None]
